FAERS Safety Report 7168803-0 (Version None)
Quarter: 2010Q4

REPORT INFORMATION
  Report Type: 
  Country: None (occurrence: None)
  Receive Date: 20101216
  Receipt Date: 20100216
  Transmission Date: 20110411
  Serious: No
  Sender: FDA-Public Use
  Company Number: US-AMGEN-TCS386816

PATIENT

DRUGS (1)
  1. ENBREL [Suspect]
     Indication: PSORIASIS
     Dosage: UNK UNK, UNK
     Dates: start: 20090301

REACTIONS (3)
  - COLONOSCOPY [None]
  - OESOPHAGOGASTRODUODENOSCOPY [None]
  - ORAL SURGERY [None]
